FAERS Safety Report 11315784 (Version 1)
Quarter: 2015Q3

REPORT INFORMATION
  Report Type: Spontaneous
  Country: US (occurrence: None)
  Receive Date: 20150724
  Receipt Date: 20150724
  Transmission Date: 20151125
  Serious: No
  Sender: FDA-Public Use
  Company Number: None

PATIENT
  Age: 48 Year
  Sex: Male

DRUGS (1)
  1. WARFARIN [Suspect]
     Active Substance: WARFARIN
     Indication: ANTICOAGULANT THERAPY
     Dosage: 15 MG, 15 MG, 10 MG, 2.5 MG
     Route: 048
     Dates: start: 20150416

REACTIONS (3)
  - International normalised ratio increased [None]
  - Fluid overload [None]
  - International normalised ratio decreased [None]

NARRATIVE: CASE EVENT DATE: 20150420
